FAERS Safety Report 8609997-7 (Version None)
Quarter: 2012Q3

REPORT INFORMATION
  Report Type: 
  Country: None (occurrence: None)
  Receive Date: 20120822
  Receipt Date: 20120718
  Transmission Date: 20120928
  Serious: Yes (Hospitalization)
  Sender: FDA-Public Use
  Company Number: JP-009507513-1207JPN007987

PATIENT

DRUGS (2)
  1. ALENDRONATE SODIUM [Suspect]
     Indication: RHEUMATOID ARTHRITIS
     Dosage: DAILY DOSAGE UNKNOWN
     Route: 048
  2. [THERAPY UNSPECIFIED] [Suspect]
     Indication: RHEUMATOID ARTHRITIS
     Dosage: DAILY DOSAGE UNKNOWN
     Route: 065

REACTIONS (1)
  - OSTEOMYELITIS [None]
